FAERS Safety Report 16046777 (Version 1)
Quarter: 2019Q1

REPORT INFORMATION
  Report Type: Spontaneous
  Country: US (occurrence: US)
  Receive Date: 20190307
  Receipt Date: 20190307
  Transmission Date: 20190418
  Serious: Yes (Other)
  Sender: FDA-Public Use
  Company Number: US-TEVA-2019-US-1019712

PATIENT
  Age: 50 Year
  Sex: Male

DRUGS (3)
  1. FOSCARNET [Suspect]
     Active Substance: FOSCARNET
     Indication: LARYNGITIS VIRAL
     Dosage: 80 MG/KG DAILY;
     Route: 051
  2. FAMCICLOVIR. [Suspect]
     Active Substance: FAMCICLOVIR
     Indication: LARYNGITIS VIRAL
     Route: 048
  3. ACICLOVIR [Suspect]
     Active Substance: ACYCLOVIR
     Indication: LARYNGITIS VIRAL
     Route: 065

REACTIONS (1)
  - Drug ineffective [Unknown]
